FAERS Safety Report 4729338-5 (Version None)
Quarter: 2005Q3

REPORT INFORMATION
  Report Type: 
  Country: None (occurrence: None)
  Receive Date: 20050729
  Receipt Date: 20050721
  Transmission Date: 20060218
  Serious: Yes (Hospitalization)
  Sender: FDA-Public Use
  Company Number: PHNR2005AU01170

PATIENT

DRUGS (3)
  1. NEORAL [Suspect]
     Indication: RENAL TRANSPLANT
     Dosage: 60 MG, BID
     Dates: start: 19970101
  2. DILTIAZEM [Suspect]
     Dosage: 240 MG/DAY
     Dates: start: 19970101, end: 20050720
  3. ATENOLOL [Concomitant]
     Dates: end: 20050720

REACTIONS (3)
  - ARRHYTHMIA [None]
  - CARDIAC DISORDER [None]
  - CONCOMITANT DISEASE AGGRAVATED [None]
